FAERS Safety Report 17839196 (Version 1)
Quarter: 2020Q2

REPORT INFORMATION
  Report Type: Spontaneous
  Country: US (occurrence: US)
  Receive Date: 20200529
  Receipt Date: 20200529
  Transmission Date: 20200714
  Serious: Yes (Hospitalization)
  Sender: FDA-Public Use
  Company Number: None

PATIENT
  Age: 42 Year
  Sex: Male
  Weight: 94.5 kg

DRUGS (1)
  1. GABAPENTIN 800MG [Suspect]
     Active Substance: GABAPENTIN
     Indication: HYPOTONIA
     Route: 048
     Dates: start: 20200108, end: 20200525

REACTIONS (5)
  - Panic attack [None]
  - Cognitive disorder [None]
  - Aggression [None]
  - Amnesia [None]
  - Suicide attempt [None]

NARRATIVE: CASE EVENT DATE: 20200525
